FAERS Safety Report 5732825-4 (Version None)
Quarter: 2008Q2

REPORT INFORMATION
  Report Type: 
  Country: None (occurrence: None)
  Receive Date: 20080507
  Receipt Date: 20080507
  Transmission Date: 20081010
  Serious: Yes (Hospitalization)
  Sender: FDA-Public Use
  Company Number: None

PATIENT
  Sex: Male
  Weight: 120 kg

DRUGS (1)
  1. LUPRON [Suspect]
     Indication: PROSTATE CANCER
     Dosage: 22.5MG EVERY 3 MONTHS IM
     Route: 030
     Dates: start: 20071119, end: 20071119

REACTIONS (2)
  - HERNIA [None]
  - PAIN [None]
